FAERS Safety Report 7825698-7 (Version None)
Quarter: 2011Q4

REPORT INFORMATION
  Report Type: 
  Country: None (occurrence: None)
  Receive Date: 20111019
  Receipt Date: 20111012
  Transmission Date: 20120403
  Serious: Yes (Death)
  Sender: FDA-Public Use
  Company Number: US-CELGENEUS-163-21880-11101512

PATIENT
  Sex: Male
  Weight: 140.74 kg

DRUGS (9)
  1. REVLIMID [Suspect]
     Indication: MULTIPLE MYELOMA
     Dosage: 10 MILLIGRAM
     Route: 048
     Dates: start: 20110822
  2. ENLAPRIL [Concomitant]
     Dosage: 10 MILLIGRAM
     Route: 048
     Dates: start: 20100822
  3. ASPIRIN [Concomitant]
     Dosage: 81 MILLIGRAM
     Route: 048
     Dates: start: 20100101
  4. GARLIC PILL [Concomitant]
     Route: 048
     Dates: start: 20080101
  5. GLYBURIDE [Concomitant]
     Dosage: 3 MILLIGRAM
     Route: 048
     Dates: start: 20050101
  6. VITAMIN B-12 [Concomitant]
     Dosage: 1000 MILLIGRAM
     Route: 048
     Dates: start: 20110101
  7. CALCIUM / D [Concomitant]
     Dosage: 600/4.00
     Route: 048
     Dates: start: 20110101
  8. ATENOLOL [Concomitant]
     Dosage: 100 MILLIGRAM
     Route: 048
     Dates: start: 20030101
  9. ACTOS [Concomitant]
     Dosage: 30 MILLIGRAM
     Route: 048
     Dates: start: 20100101

REACTIONS (1)
  - DEATH [None]
